FAERS Safety Report 6964703-7 (Version None)
Quarter: 2010Q3

REPORT INFORMATION
  Report Type: 
  Country: None (occurrence: None)
  Receive Date: 20100903
  Receipt Date: 20100826
  Transmission Date: 20110219
  Serious: Yes (Death, Other)
  Sender: FDA-Public Use
  Company Number: DK-GENZYME-CLOF-1001160

PATIENT
  Sex: Female

DRUGS (1)
  1. EVOLTRA [Suspect]
     Indication: ACUTE LEUKAEMIA

REACTIONS (9)
  - ATRIAL FIBRILLATION [None]
  - CATHETER SITE PHLEBITIS [None]
  - FEBRILE NEUTROPENIA [None]
  - INFECTION [None]
  - LUNG INFILTRATION [None]
  - NEUTROPENIA [None]
  - OEDEMA PERIPHERAL [None]
  - PNEUMONIA [None]
  - TUMOUR LYSIS SYNDROME [None]
